FAERS Safety Report 5263551-6 (Version None)
Quarter: 2007Q1

REPORT INFORMATION
  Report Type: 
  Country: None (occurrence: None)
  Receive Date: 20061213
  Receipt Date: 20031224
  Transmission Date: 20070707
  Serious: No
  Sender: FDA-Public Use
  Company Number: 2003UW17204

PATIENT
  Sex: Male

DRUGS (1)
  1. IRESSA [Suspect]

REACTIONS (2)
  - DISEASE PROGRESSION [None]
  - WEIGHT DECREASED [None]
